FAERS Safety Report 20020713 (Version 1)
Quarter: 2021Q4

REPORT INFORMATION
  Report Type: Report from Study
  Country: DE (occurrence: DE)
  Receive Date: 20211101
  Receipt Date: 20211101
  Transmission Date: 20220303
  Serious: Yes (Other)
  Sender: FDA-Public Use
  Company Number: DE-NOVARTISPH-NVSC2021DE246045

PATIENT
  Sex: Female

DRUGS (11)
  1. OMNITROPE [Suspect]
     Active Substance: SOMATROPIN
     Indication: Growth hormone deficiency
     Dosage: 0.3 (5MG/1.5ML)
     Route: 058
     Dates: start: 20200427
  2. GYNOKADIN GEL [Concomitant]
     Indication: Luteinising hormone deficiency
     Dosage: UNK
     Route: 061
     Dates: start: 2017
  3. GYNOKADIN GEL [Concomitant]
     Indication: Follicle stimulating hormone deficiency
  4. PROGESTERONE [Concomitant]
     Active Substance: PROGESTERONE
     Indication: Luteinising hormone deficiency
     Dosage: UNK
     Route: 048
     Dates: start: 2017
  5. PROGESTERONE [Concomitant]
     Active Substance: PROGESTERONE
     Indication: Follicle stimulating hormone deficiency
  6. EUTHYROX [Concomitant]
     Active Substance: LEVOTHYROXINE SODIUM
     Indication: Thyroid stimulating hormone deficiency
     Dosage: UNK
     Route: 048
     Dates: start: 2017
  7. HYDROCORTISONE [Concomitant]
     Active Substance: HYDROCORTISONE
     Indication: Adrenocorticotropic hormone deficiency
     Dosage: UNK
     Route: 048
     Dates: start: 2017
  8. HYDROCORTISONE [Concomitant]
     Active Substance: HYDROCORTISONE
     Indication: Adrenocorticotropic hormone deficiency
     Dosage: UNK
     Route: 048
     Dates: start: 20200422
  9. ROSUVASTATIN [Concomitant]
     Active Substance: ROSUVASTATIN
     Indication: Hypercholesterolaemia
     Dosage: UNK
     Route: 048
     Dates: start: 2017
  10. METFORMIN [Concomitant]
     Active Substance: METFORMIN HYDROCHLORIDE
     Indication: Glucose tolerance impaired
     Dosage: UNK
     Route: 048
     Dates: start: 20200422
  11. DESMOPRESSIN ACETATE [Concomitant]
     Active Substance: DESMOPRESSIN ACETATE
     Indication: Hypopituitarism
     Dosage: UNK
     Route: 048
     Dates: start: 2017

REACTIONS (1)
  - Type 2 diabetes mellitus [Not Recovered/Not Resolved]

NARRATIVE: CASE EVENT DATE: 20210406
